FAERS Safety Report 6223763-1 (Version None)
Quarter: 2009Q2

REPORT INFORMATION
  Report Type: 
  Country: None (occurrence: None)
  Receive Date: 20090611
  Receipt Date: 20090528
  Transmission Date: 20091009
  Serious: No
  Sender: FDA-Public Use
  Company Number: US-ABBOTT-09P-163-0496991-00

PATIENT
  Sex: Female
  Weight: 79.45 kg

DRUGS (18)
  1. HUMIRA [Suspect]
     Indication: PSORIATIC ARTHROPATHY
     Route: 058
     Dates: start: 20080911, end: 20090101
  2. HUMIRA [Suspect]
     Dates: start: 20090401
  3. METHOTREXATE [Concomitant]
     Indication: PSORIATIC ARTHROPATHY
  4. KALAN SR [Concomitant]
     Indication: ARRHYTHMIA
  5. LANOXIN [Concomitant]
     Indication: ARRHYTHMIA
  6. CARVEDILOL [Concomitant]
     Indication: BLOOD PRESSURE
  7. GLUMETZA [Concomitant]
     Indication: DRUG USE FOR UNKNOWN INDICATION
  8. PROTONIX [Concomitant]
     Indication: DRUG USE FOR UNKNOWN INDICATION
  9. VITAMIN E [Concomitant]
     Indication: DRUG USE FOR UNKNOWN INDICATION
  10. CALCIUM [Concomitant]
     Indication: DRUG USE FOR UNKNOWN INDICATION
  11. CINNAMIN [Concomitant]
     Indication: DRUG USE FOR UNKNOWN INDICATION
  12. CALCIUM + VITAMIN D [Concomitant]
     Indication: DRUG USE FOR UNKNOWN INDICATION
  13. VITAMIN B-12 [Concomitant]
     Indication: DRUG USE FOR UNKNOWN INDICATION
  14. FISH OIL [Concomitant]
     Indication: DRUG USE FOR UNKNOWN INDICATION
  15. FLAX SEED OIL [Concomitant]
     Indication: DRUG USE FOR UNKNOWN INDICATION
  16. MAGNESIUM SULFATE [Concomitant]
     Indication: DRUG USE FOR UNKNOWN INDICATION
  17. FOLIC ACID [Concomitant]
     Indication: DRUG USE FOR UNKNOWN INDICATION
  18. METHROGEL [Concomitant]
     Indication: DRUG USE FOR UNKNOWN INDICATION

REACTIONS (8)
  - ASTHENIA [None]
  - FATIGUE [None]
  - HOT FLUSH [None]
  - INJECTION SITE HAEMATOMA [None]
  - INJECTION SITE HAEMORRHAGE [None]
  - INJECTION SITE RASH [None]
  - INJECTION SITE URTICARIA [None]
  - PARAESTHESIA [None]
